FAERS Safety Report 9601587 (Version 1)
Quarter: 2013Q4

REPORT INFORMATION
  Report Type: Spontaneous
  Country: AR (occurrence: AR)
  Receive Date: 20131007
  Receipt Date: 20131007
  Transmission Date: 20140711
  Serious: Yes (Death, Disabling)
  Sender: FDA-Public Use
  Company Number: AR-ROCHE-1284539

PATIENT
  Age: 76 Year
  Sex: Female

DRUGS (8)
  1. ACTILYSE [Suspect]
     Indication: ISCHAEMIC STROKE
     Route: 042
  2. ACTILYSE [Suspect]
     Indication: ISCHAEMIC STROKE
  3. LOW MOLECULAR WEIGHT HEPARIN [Suspect]
     Indication: ANTICOAGULANT THERAPY
     Route: 065
  4. SPIRONOLACTONE [Concomitant]
     Route: 065
  5. FUROSEMIDE [Concomitant]
     Route: 065
  6. CARVEDILOL [Concomitant]
     Route: 065
  7. SIMVASTATIN [Concomitant]
     Route: 065
  8. ACETYLSALICYLIC ACID [Concomitant]
     Route: 065

REACTIONS (4)
  - Pneumonia [Fatal]
  - Ischaemic stroke [Unknown]
  - Haemorrhagic transformation stroke [Unknown]
  - Drug ineffective [Unknown]
